FAERS Safety Report 24969894 (Version 2)
Quarter: 2025Q1

REPORT INFORMATION
  Report Type: Spontaneous
  Country: JP (occurrence: JP)
  Receive Date: 20250214
  Receipt Date: 20250326
  Transmission Date: 20250409
  Serious: Yes (Other)
  Sender: BAYER HEALTHCARE PHARMACEUTICALS INC.
  Company Number: JP-BAYER-2024A086129

PATIENT
  Age: 72 Year
  Sex: Male
  Weight: 57 kg

DRUGS (6)
  1. NUBEQA [Suspect]
     Active Substance: DAROLUTAMIDE
     Indication: Hormone-dependent prostate cancer
     Dosage: DAILY DOSE 1200MG, BID
     Route: 048
     Dates: start: 20231227, end: 20240109
  2. NUBEQA [Suspect]
     Active Substance: DAROLUTAMIDE
     Indication: Hormone-dependent prostate cancer
     Dosage: DAILY DOSE 600MG, BID
     Route: 048
     Dates: start: 20240110, end: 20240220
  3. NUBEQA [Suspect]
     Active Substance: DAROLUTAMIDE
     Indication: Hormone-dependent prostate cancer
     Dosage: DAILY DOSE 1200MG, BID
     Route: 048
     Dates: start: 20240221, end: 20240313
  4. DOCETAXEL [Suspect]
     Active Substance: DOCETAXEL
     Indication: Hormone-dependent prostate cancer
     Dates: start: 20240124, end: 20240124
  5. DOCETAXEL [Suspect]
     Active Substance: DOCETAXEL
     Indication: Hormone-dependent prostate cancer
     Dates: start: 20240221, end: 20240424
  6. DEGARELIX [Concomitant]
     Active Substance: DEGARELIX
     Dates: start: 20231129, end: 20240717

REACTIONS (4)
  - Hormone-dependent prostate cancer [Not Recovered/Not Resolved]
  - Neutrophil count decreased [Recovered/Resolved]
  - Hepatic function abnormal [Recovered/Resolved]
  - White blood cell count decreased [Recovered/Resolved]

NARRATIVE: CASE EVENT DATE: 20240110
